FAERS Safety Report 12299819 (Version 2)
Quarter: 2016Q2

REPORT INFORMATION
  Report Type: Spontaneous
  Country: BR (occurrence: BR)
  Receive Date: 20160425
  Receipt Date: 20160629
  Transmission Date: 20160815
  Serious: Yes (Other)
  Sender: FDA-Public Use
  Company Number: BR-PFIZER INC-2016221381

PATIENT
  Age: 58 Year
  Sex: Female

DRUGS (6)
  1. OLCADIL [Concomitant]
     Active Substance: CLOXAZOLAM
     Dosage: ONCE TIME EVERY 2 WEEKS
     Route: 048
  2. OLCADIL [Concomitant]
     Active Substance: CLOXAZOLAM
     Indication: SLEEP DISORDER
     Dosage: 1 DF, 1 TABLET EVERY OTHER DAY
     Route: 048
     Dates: start: 2004
  3. LEVOID [Concomitant]
     Active Substance: LEVOTHYROXINE
     Dosage: 1 DF, 1 TABLET A DAY
     Dates: start: 2004
  4. CELEBRA [Suspect]
     Active Substance: CELECOXIB
     Indication: FRACTURE PAIN
     Dosage: 1 TABLET 200 MG EVERY 12 HOURS
     Route: 048
     Dates: start: 2012
  5. CELEBRA [Suspect]
     Active Substance: CELECOXIB
     Dosage: 1 TABLET EVERY 12 HOURS
     Route: 048
     Dates: start: 20160412, end: 20160413
  6. PANTOPRAZOLE [Concomitant]
     Active Substance: PANTOPRAZOLE SODIUM
     Dosage: 1 DF, 1 TABLET A DAY
     Route: 048
     Dates: start: 2004

REACTIONS (7)
  - Skin discolouration [Recovered/Resolved]
  - Disease recurrence [Recovered/Resolved]
  - Malaise [Recovered/Resolved]
  - Hyperhidrosis [Recovered/Resolved]
  - Nausea [Recovered/Resolved]
  - Dizziness [Recovered/Resolved]
  - Throat tightness [Recovered/Resolved]

NARRATIVE: CASE EVENT DATE: 2012
